FAERS Safety Report 9291454 (Version 5)
Quarter: 2017Q1

REPORT INFORMATION
  Report Type: Spontaneous
  Country: US (occurrence: US)
  Receive Date: 20130515
  Receipt Date: 20170217
  Transmission Date: 20170429
  Serious: Yes (Disabling, Other)
  Sender: FDA-Public Use
  Company Number: US-009507513-1305USA009432

PATIENT
  Sex: Male

DRUGS (4)
  1. CLARITIN [Concomitant]
     Active Substance: LORATADINE
     Indication: PRODUCT USED FOR UNKNOWN INDICATION
     Dosage: UNK
     Route: 048
     Dates: start: 20000404, end: 20001217
  2. PROPECIA [Suspect]
     Active Substance: FINASTERIDE
     Indication: ALOPECIA
     Dosage: 1 MG, QD
     Route: 048
     Dates: start: 1997, end: 200404
  3. ASTELIN (AZELASTINE HYDROCHLORIDE) [Concomitant]
     Active Substance: AZELASTINE HYDROCHLORIDE
     Indication: HYPERSENSITIVITY
     Dosage: UNK
     Dates: start: 20010321, end: 20011113
  4. NASONEX [Concomitant]
     Active Substance: MOMETASONE FUROATE
     Indication: HYPERSENSITIVITY
     Dosage: 2 SPRAYS, QD
     Route: 045
     Dates: start: 20010105, end: 20011113

REACTIONS (15)
  - Candida infection [Unknown]
  - Osteoporosis [Unknown]
  - Productive cough [Unknown]
  - Post herpetic neuralgia [Not Recovered/Not Resolved]
  - Nasopharyngitis [Unknown]
  - Pharyngitis streptococcal [Unknown]
  - Osteonecrosis [Not Recovered/Not Resolved]
  - Osteopenia [Unknown]
  - Anxiety [Unknown]
  - Erectile dysfunction [Not Recovered/Not Resolved]
  - Insomnia [Unknown]
  - Infection [Unknown]
  - Anal haemorrhage [Unknown]
  - Sexual dysfunction [Not Recovered/Not Resolved]
  - Nasal discharge discolouration [Unknown]

NARRATIVE: CASE EVENT DATE: 20000613
